FAERS Safety Report 25398714 (Version 3)
Quarter: 2025Q3

REPORT INFORMATION
  Report Type: Report from Study
  Country: US (occurrence: US)
  Receive Date: 20250604
  Receipt Date: 20250723
  Transmission Date: 20251020
  Serious: No
  Sender: MALLINCKRODT
  Company Number: US-MALLINCKRODT-MNK202502642

PATIENT
  Age: 52 Year
  Sex: Female

DRUGS (3)
  1. CORTICOTROPIN [Suspect]
     Active Substance: CORTICOTROPIN
     Indication: Ankylosing spondylitis
  2. CORTICOTROPIN [Suspect]
     Active Substance: CORTICOTROPIN
  3. NALTREXONE [Concomitant]
     Active Substance: NALTREXONE
     Dates: start: 202506

REACTIONS (5)
  - Therapeutic procedure [Recovering/Resolving]
  - Feeling abnormal [Recovering/Resolving]
  - Irritability [Recovering/Resolving]
  - Injection site discharge [Unknown]
  - Injection site bruising [Recovering/Resolving]

NARRATIVE: CASE EVENT DATE: 20250429
